FAERS Safety Report 25389196 (Version 2)
Quarter: 2025Q3

REPORT INFORMATION
  Report Type: Spontaneous
  Country: US (occurrence: US)
  Receive Date: 20250603
  Receipt Date: 20250716
  Transmission Date: 20251020
  Serious: Yes (Other)
  Sender: COOPERSURGICAL
  Company Number: US-COOPERSURGICAL, INC.-2025CPS004462

PATIENT
  Sex: Female
  Weight: 65.76 kg

DRUGS (1)
  1. PARAGARD T 380A [Suspect]
     Active Substance: COPPER
     Indication: Contraception
     Route: 015
     Dates: start: 20120701

REACTIONS (20)
  - Reproductive complication associated with device [Not Recovered/Not Resolved]
  - Infertility female [Not Recovered/Not Resolved]
  - Device breakage [Recovered/Resolved]
  - Foreign body in urogenital tract [Recovered/Resolved]
  - Complication of device removal [Recovered/Resolved]
  - Embedded device [Not Recovered/Not Resolved]
  - Uterine perforation [Unknown]
  - Device dislocation [Not Recovered/Not Resolved]
  - Anxiety [Not Recovered/Not Resolved]
  - Emotional distress [Not Recovered/Not Resolved]
  - Procedural pain [Recovered/Resolved]
  - Fear [Not Recovered/Not Resolved]
  - Dyschezia [Not Recovered/Not Resolved]
  - Dysuria [Not Recovered/Not Resolved]
  - Abdominal distension [Not Recovered/Not Resolved]
  - Pelvic pain [Not Recovered/Not Resolved]
  - Menstruation irregular [Recovered/Resolved]
  - Dysmenorrhoea [Not Recovered/Not Resolved]
  - Pain [Not Recovered/Not Resolved]
  - Device expulsion [Recovered/Resolved]

NARRATIVE: CASE EVENT DATE: 20120101
